FAERS Safety Report 9823317 (Version 1)
Quarter: 2014Q1

REPORT INFORMATION
  Report Type: Spontaneous
  Country: ES (occurrence: ES)
  Receive Date: 20140116
  Receipt Date: 20140116
  Transmission Date: 20141002
  Serious: Yes (Life-Threatening, Hospitalization)
  Sender: FDA-Public Use
  Company Number: ES-US-EMD SERONO, INC.-E2B_7262572

PATIENT
  Age: 50 Year
  Sex: Female
  Weight: 55 kg

DRUGS (4)
  1. REBIF [Suspect]
     Indication: RELAPSING-REMITTING MULTIPLE SCLEROSIS
     Route: 058
     Dates: start: 20090408, end: 201209
  2. GABAPENTIN [Concomitant]
     Indication: PRODUCT USED FOR UNKNOWN INDICATION
     Route: 048
  3. EUTHYROX [Concomitant]
     Indication: PRODUCT USED FOR UNKNOWN INDICATION
  4. EUTHYROX [Concomitant]

REACTIONS (1)
  - Lung adenocarcinoma [Not Recovered/Not Resolved]
